FAERS Safety Report 8605375-5 (Version None)
Quarter: 2012Q3

REPORT INFORMATION
  Report Type: 
  Country: None (occurrence: None)
  Receive Date: 20120820
  Receipt Date: 20120814
  Transmission Date: 20120928
  Serious: Yes (Death)
  Sender: FDA-Public Use
  Company Number: US-PFIZER INC-2012199596

PATIENT
  Age: 77 Year
  Sex: Female

DRUGS (1)
  1. ZYVOX [Suspect]
     Indication: LOWER RESPIRATORY TRACT INFECTION BACTERIAL
     Dosage: 600 MG, 2X/DAY
     Dates: start: 20110728, end: 20120301

REACTIONS (1)
  - DEATH [None]
